FAERS Safety Report 20343751 (Version 1)
Quarter: 2022Q1

REPORT INFORMATION
  Report Type: Spontaneous
  Country: US (occurrence: US)
  Receive Date: 20220118
  Receipt Date: 20220118
  Transmission Date: 20220423
  Serious: Yes (Other)
  Sender: FDA-Public Use
  Company Number: US-CELGENE-USA-20220103703

PATIENT
  Sex: Female
  Weight: 73.094 kg

DRUGS (1)
  1. REVLIMID [Suspect]
     Active Substance: LENALIDOMIDE
     Indication: Plasma cell myeloma
     Dosage: 5 MILLIGRAM
     Route: 048
     Dates: start: 20210615, end: 20220112

REACTIONS (3)
  - Pancytopenia [Unknown]
  - Blood pH decreased [Unknown]
  - Drug intolerance [Unknown]
